FAERS Safety Report 6248301-9 (Version None)
Quarter: 2009Q2

REPORT INFORMATION
  Report Type: 
  Country: None (occurrence: None)
  Receive Date: 20090625
  Receipt Date: 20090625
  Transmission Date: 20091009
  Serious: No
  Sender: FDA-Public Use
  Company Number: None

PATIENT
  Sex: Female

DRUGS (1)
  1. DIVALPROEX SODIUM [Suspect]
     Indication: EPILEPSY
     Dosage: 3 TABS TWICE DAILY PO
     Route: 048

REACTIONS (1)
  - DRUG INEFFECTIVE [None]
